FAERS Safety Report 14861027 (Version 1)
Quarter: 2018Q2

REPORT INFORMATION
  Report Type: Spontaneous
  Country: FR (occurrence: FR)
  Receive Date: 20180508
  Receipt Date: 20180508
  Transmission Date: 20180711
  Serious: Yes (Life-Threatening, Hospitalization)
  Sender: FDA-Public Use
  Company Number: FR-PFIZER INC-2018183803

PATIENT
  Age: 1 Year
  Sex: Female
  Weight: 10 kg

DRUGS (3)
  1. ADVILMED ENFANTS ET NOURRISSONS [Suspect]
     Active Substance: IBUPROFEN
     Dosage: 1 DF, UNK
     Route: 048
     Dates: start: 20180308, end: 20180310
  2. NIFLURIL /00889901/ [Suspect]
     Active Substance: MORNIFLUMATE
     Indication: PYREXIA
     Dosage: 400 MG, SINGLE
     Route: 054
     Dates: start: 20180310
  3. DOLIPRANE [Concomitant]
     Active Substance: ACETAMINOPHEN
     Indication: PYREXIA
     Dosage: UNK
     Route: 048
     Dates: start: 20180308

REACTIONS (8)
  - Altered state of consciousness [Recovered/Resolved]
  - Neutropenia [Recovering/Resolving]
  - Rhabdomyolysis [Recovering/Resolving]
  - Ataxia [Recovered/Resolved]
  - Thrombocytopenia [Recovered/Resolved]
  - Hepatocellular injury [Recovering/Resolving]
  - Reye^s syndrome [Recovering/Resolving]
  - Condition aggravated [Recovered/Resolved]

NARRATIVE: CASE EVENT DATE: 20180309
